FAERS Safety Report 11409661 (Version 2)
Quarter: 2015Q3

REPORT INFORMATION
  Report Type: Spontaneous
  Country: NL (occurrence: NL)
  Receive Date: 20150824
  Receipt Date: 20150918
  Transmission Date: 20151125
  Serious: Yes (Hospitalization)
  Sender: FDA-Public Use
  Company Number: NL-ROCHE-1624459

PATIENT
  Age: 84 Year
  Sex: Female

DRUGS (2)
  1. VISMED [Concomitant]
     Route: 065
  2. LUCENTIS [Suspect]
     Active Substance: RANIBIZUMAB
     Indication: RETINAL VEIN OCCLUSION
     Route: 031
     Dates: start: 201503, end: 20150629

REACTIONS (1)
  - Dermatitis bullous [Recovered/Resolved]

NARRATIVE: CASE EVENT DATE: 20150710
